FAERS Safety Report 8495207-0 (Version None)
Quarter: 2012Q2

REPORT INFORMATION
  Report Type: 
  Country: None (occurrence: None)
  Receive Date: 20120628
  Receipt Date: 20120613
  Transmission Date: 20120825
  Serious: Yes (Hospitalization)
  Sender: FDA-Public Use
  Company Number: HA12-183-AE

PATIENT
  Age: 74 Year
  Sex: Female
  Weight: 74.4 kg

DRUGS (13)
  1. TRAMADOL HCL [Concomitant]
  2. MONTELUKAST SODIUM [Concomitant]
  3. ASPIRIN [Concomitant]
  4. CELECOXIB; IBUPROFEN; PLACEBO [Suspect]
     Indication: RHEUMATOID ARTHRITIS
     Dosage: THREE TIMES A DAY; ORAL
     Route: 048
     Dates: start: 20110902
  5. CELECOXIB; IBUPROFEN; PLACEBO [Suspect]
     Indication: OSTEOARTHRITIS
     Dosage: THREE TIMES A DAY; ORAL
     Route: 048
     Dates: start: 20110902
  6. LISINOPRIL [Concomitant]
  7. MOMETASONE FUROATE [Concomitant]
  8. NAPROXEN [Suspect]
     Indication: OSTEOARTHRITIS
     Dosage: THREE TIMES A DAY, ORAL
     Route: 048
     Dates: start: 20110902
  9. NAPROXEN [Suspect]
     Indication: RHEUMATOID ARTHRITIS
     Dosage: THREE TIMES A DAY, ORAL
     Route: 048
     Dates: start: 20110902
  10. LORATADINE [Concomitant]
  11. CELECOXIB [Concomitant]
  12. ESOMEPRAZOLE [Concomitant]
  13. GABAPENTIN [Concomitant]

REACTIONS (22)
  - ABSCESS INTESTINAL [None]
  - BACTERIAL TEST POSITIVE [None]
  - HYPOTENSION [None]
  - TACHYCARDIA [None]
  - SEPTIC SHOCK [None]
  - KIDNEY TRANSPLANT REJECTION [None]
  - PULMONARY EMBOLISM [None]
  - ADRENAL INSUFFICIENCY [None]
  - CYSTITIS [None]
  - FUNGAL TEST POSITIVE [None]
  - RENAL CYST [None]
  - NAUSEA [None]
  - DIARRHOEA [None]
  - HAEMODIALYSIS [None]
  - ABDOMINAL PAIN [None]
  - VOMITING [None]
  - CULTURE POSITIVE [None]
  - GASTROENTERITIS VIRAL [None]
  - SHOCK [None]
  - BLADDER DISORDER [None]
  - PERITONITIS [None]
  - SPLEEN DISORDER [None]
